FAERS Safety Report 13864438 (Version 1)
Quarter: 2017Q3

REPORT INFORMATION
  Report Type: Spontaneous
  Country: US (occurrence: US)
  Receive Date: 20170814
  Receipt Date: 20170814
  Transmission Date: 20171127
  Serious: Yes (Other)
  Sender: FDA-Public Use
  Company Number: US-WEST-WARD PHARMACEUTICALS CORP.-US-H14001-17-02929

PATIENT
  Sex: Female

DRUGS (1)
  1. NAPROSYN [Suspect]
     Active Substance: NAPROXEN
     Indication: PRODUCT USED FOR UNKNOWN INDICATION
     Route: 065

REACTIONS (7)
  - Staphylococcal infection [Unknown]
  - Klebsiella infection [Unknown]
  - Adenocarcinoma pancreas [Unknown]
  - Metabolic acidosis [Unknown]
  - Systemic inflammatory response syndrome [Unknown]
  - Acute kidney injury [Unknown]
  - Urinary tract infection [Unknown]
